FAERS Safety Report 18577419 (Version 1)
Quarter: 2020Q4

REPORT INFORMATION
  Report Type: Spontaneous
  Country: US (occurrence: US)
  Receive Date: 20201204
  Receipt Date: 20201204
  Transmission Date: 20210114
  Serious: Yes (Death, Other)
  Sender: FDA-Public Use
  Company Number: US-CHEPLA-C20203624_02

PATIENT
  Age: 67 Year
  Sex: Female

DRUGS (3)
  1. FOSCARNET [Suspect]
     Active Substance: FOSCARNET
  2. GANCICLOVIR. [Suspect]
     Active Substance: GANCICLOVIR
     Indication: CYTOMEGALOVIRUS INFECTION
  3. CIDOFOVIR. [Suspect]
     Active Substance: CIDOFOVIR

REACTIONS (3)
  - Uveitis [Unknown]
  - Drug resistance [Unknown]
  - Cerebrovascular accident [Fatal]
